FAERS Safety Report 21155824 (Version 2)
Quarter: 2022Q3

REPORT INFORMATION
  Report Type: Spontaneous
  Country: US (occurrence: US)
  Receive Date: 20220801
  Receipt Date: 20220804
  Transmission Date: 20221026
  Serious: Yes (Life-Threatening, Hospitalization, Other)
  Sender: FDA-Public Use
  Company Number: US-ASTELLAS-2022US026802

PATIENT
  Age: 72 Year
  Sex: Male

DRUGS (2)
  1. ENZALUTAMIDE [Suspect]
     Active Substance: ENZALUTAMIDE
     Indication: Hormone-refractory prostate cancer
     Route: 048
  2. GOSERELIN [Concomitant]
     Active Substance: GOSERELIN
     Indication: Prostate cancer recurrent
     Dosage: 10.8 MG, EVERY 12 WEEKS
     Route: 065
     Dates: start: 2018

REACTIONS (5)
  - Ventricular fibrillation [Recovered/Resolved]
  - Cardiac arrest [Recovered/Resolved]
  - Electrocardiogram QT prolonged [Recovering/Resolving]
  - Torsade de pointes [Recovered/Resolved]
  - Electrocardiogram QT prolonged [Recovering/Resolving]
